FAERS Safety Report 10605661 (Version 1)
Quarter: 2014Q4

REPORT INFORMATION
  Report Type: Spontaneous
  Country: US (occurrence: US)
  Receive Date: 20141125
  Receipt Date: 20141125
  Transmission Date: 20150529
  Serious: Yes (Hospitalization)
  Sender: FDA-Public Use
  Company Number: PHHY2014US148547

PATIENT
  Age: 11 Year
  Sex: Female

DRUGS (1)
  1. CETIRIZINE [Suspect]
     Active Substance: CETIRIZINE HYDROCHLORIDE
     Indication: PRODUCT USED FOR UNKNOWN INDICATION
     Dosage: 5 MG, QD
     Route: 065

REACTIONS (11)
  - Macule [Recovered/Resolved]
  - Vomiting [Recovered/Resolved]
  - Erythema [Recovered/Resolved]
  - Red blood cell sedimentation rate increased [Unknown]
  - Rash [Recovered/Resolved]
  - Pruritus [Recovered/Resolved]
  - Neutrophilia [Unknown]
  - Acute generalised exanthematous pustulosis [Recovered/Resolved]
  - Rash pustular [Recovered/Resolved]
  - C-reactive protein increased [Unknown]
  - Malaise [Recovered/Resolved]
